FAERS Safety Report 16528619 (Version 1)
Quarter: 2019Q3

REPORT INFORMATION
  Report Type: Report from Study
  Country: CO (occurrence: CO)
  Receive Date: 20190703
  Receipt Date: 20190703
  Transmission Date: 20191004
  Serious: Yes (Hospitalization, Other)
  Sender: FDA-Public Use
  Company Number: PHHY2019CO056388

PATIENT
  Sex: Male
  Weight: 56 kg

DRUGS (2)
  1. VOTRIENT [Suspect]
     Active Substance: PAZOPANIB HYDROCHLORIDE
     Indication: METASTATIC RENAL CELL CARCINOMA
     Dosage: 800 MG, QD
     Route: 048
     Dates: start: 20190123
  2. VOTRIENT [Suspect]
     Active Substance: PAZOPANIB HYDROCHLORIDE
     Dosage: UNK
     Route: 065
     Dates: start: 20190401

REACTIONS (11)
  - General physical health deterioration [Not Recovered/Not Resolved]
  - Intestinal perforation [Unknown]
  - Abdominal pain [Not Recovered/Not Resolved]
  - Mediastinum neoplasm [Unknown]
  - Listless [Unknown]
  - Second primary malignancy [Unknown]
  - Hair colour changes [Unknown]
  - Neoplasm malignant [Unknown]
  - Skin induration [Unknown]
  - Pain [Unknown]
  - Fatigue [Unknown]
